FAERS Safety Report 21834872 (Version 1)
Quarter: 2023Q1

REPORT INFORMATION
  Report Type: Report from Study
  Country: US (occurrence: US)
  Receive Date: 20230108
  Receipt Date: 20230108
  Transmission Date: 20230418
  Serious: No
  Sender: FDA-Public Use
  Company Number: US-ABBVIE-4261287

PATIENT
  Age: 58 Year
  Sex: Female

DRUGS (1)
  1. HUMIRA [Suspect]
     Active Substance: ADALIMUMAB
     Indication: Hidradenitis
     Dosage: CF?DISCONTINUED IN 2022
     Route: 058
     Dates: start: 20221109

REACTIONS (2)
  - Urticaria [Unknown]
  - Sensitive skin [Unknown]

NARRATIVE: CASE EVENT DATE: 20221201
